FAERS Safety Report 16425320 (Version 1)
Quarter: 2019Q2

REPORT INFORMATION
  Report Type: Spontaneous
  Country: CZ (occurrence: CZ)
  Receive Date: 20190613
  Receipt Date: 20190613
  Transmission Date: 20190711
  Serious: Yes (Other)
  Sender: FDA-Public Use
  Company Number: CZ-MYLANLABS-2019M1054122

PATIENT
  Age: 71 Year
  Sex: Female

DRUGS (6)
  1. TRASTUZUMAB. [Suspect]
     Active Substance: TRASTUZUMAB
     Indication: BREAST CANCER
     Dosage: 6 MG/KG, OVER 30-MINUTE INFUSION (2ND SERIE)
  2. PERTUZUMAB. [Suspect]
     Active Substance: PERTUZUMAB
     Indication: METASTASES TO LUNG
     Dosage: PERTUZUMABU 840 MG IN 90 MINUTES INFUSION AND TRASTUZUMAB IN DOSE OF E 8 MG/KG IN 90MINUTES INFUSION
     Dates: start: 201412, end: 201506
  3. PERTUZUMAB. [Suspect]
     Active Substance: PERTUZUMAB
     Indication: BREAST CANCER
     Dosage: TRASTUZUMAB WAS ADMINISTERED IN DOSE OF 6 MG/KG IN 30MINUTES INFUSION, PERTUZUMAB IN DOSE 420 MG/M2
     Route: 042
  4. DOCETAXEL. [Suspect]
     Active Substance: DOCETAXEL
     Indication: BREAST CANCER
     Dosage: 75 MG/M2
     Route: 042
     Dates: start: 201412, end: 201506
  5. DOCETAXEL. [Suspect]
     Active Substance: DOCETAXEL
     Dosage: 100 MILLIGRAM/SQ. METER
  6. TRASTUZUMAB. [Suspect]
     Active Substance: TRASTUZUMAB
     Indication: METASTASES TO LUNG
     Dosage: 8 MG/KG, OVER 90-MINUTE INFUSION (1ST SERIE)
     Route: 042

REACTIONS (5)
  - Polyneuropathy [Unknown]
  - Toxicity to various agents [Unknown]
  - Neuropathy peripheral [Recovered/Resolved]
  - Overdose [Unknown]
  - Drug abuse [Unknown]

NARRATIVE: CASE EVENT DATE: 2015
